FAERS Safety Report 15507447 (Version 1)
Quarter: 2018Q4

REPORT INFORMATION
  Report Type: Spontaneous
  Country: US (occurrence: US)
  Receive Date: 20181016
  Receipt Date: 20181016
  Transmission Date: 20190205
  Serious: No
  Sender: FDA-Public Use
  Company Number: US-ELI_LILLY_AND_COMPANY-US201810006787

PATIENT
  Sex: Female

DRUGS (1)
  1. GALCANEZUMAB [Suspect]
     Active Substance: GALCANEZUMAB
     Indication: MIGRAINE
     Dosage: 1 DF, UNKNOWN
     Route: 065

REACTIONS (3)
  - Injection site swelling [Unknown]
  - Vertigo [Unknown]
  - Migraine [Unknown]
